FAERS Safety Report 7958969-4 (Version None)
Quarter: 2011Q4

REPORT INFORMATION
  Report Type: 
  Country: None (occurrence: None)
  Receive Date: 20111206
  Receipt Date: 20111129
  Transmission Date: 20120403
  Serious: Yes (Hospitalization)
  Sender: FDA-Public Use
  Company Number: JP-UCBSA-046703

PATIENT

DRUGS (2)
  1. CARBAMAZEPINE [Suspect]
     Route: 048
  2. KEPPRA [Suspect]
     Route: 048

REACTIONS (1)
  - DRUG ERUPTION [None]
